FAERS Safety Report 6128362-8 (Version None)
Quarter: 2009Q1

REPORT INFORMATION
  Report Type: 
  Country: None (occurrence: None)
  Receive Date: 20090323
  Receipt Date: 20090316
  Transmission Date: 20090719
  Serious: Yes (Hospitalization)
  Sender: FDA-Public Use
  Company Number: D0060896A

PATIENT
  Age: 73 Year
  Sex: Male
  Weight: 119 kg

DRUGS (10)
  1. VIANI FORTE [Suspect]
     Indication: CHRONIC OBSTRUCTIVE PULMONARY DISEASE
     Dosage: 100MCG TWICE PER DAY
     Route: 055
  2. ATACAND HCT [Suspect]
     Dosage: 16MG PER DAY
     Route: 048
     Dates: end: 20090121
  3. TORASEMIDE [Suspect]
     Dosage: 10MG PER DAY
     Route: 048
  4. GLIMEPIRIDE [Concomitant]
     Dosage: 20MG PER DAY
     Route: 048
     Dates: end: 20090121
  5. METFORMIN [Concomitant]
     Dosage: 500MG THREE TIMES PER DAY
     Route: 048
  6. ALLOPURINOL-RATIOPHARM [Concomitant]
     Dosage: 300MG PER DAY
     Route: 048
  7. FALITHROM [Concomitant]
     Indication: ATRIAL FIBRILLATION
     Route: 048
  8. PANTOZOL [Concomitant]
     Dosage: 20MG PER DAY
     Route: 048
  9. SIMVASTATIN [Concomitant]
     Dosage: 20MG PER DAY
     Route: 048
  10. SPIRIVA [Concomitant]
     Indication: CHRONIC OBSTRUCTIVE PULMONARY DISEASE
     Dosage: 18MCG PER DAY
     Route: 048

REACTIONS (2)
  - FATIGUE [None]
  - HYPERGLYCAEMIA [None]
